FAERS Safety Report 6223301-3 (Version None)
Quarter: 2009Q2

REPORT INFORMATION
  Report Type: 
  Country: None (occurrence: None)
  Receive Date: 20090611
  Receipt Date: 20090610
  Transmission Date: 20091009
  Serious: Yes (Life-Threatening)
  Sender: FDA-Public Use
  Company Number: US-B.I. PHARMACEUTICALS,INC./RIDGEFIELD-2009-BP-03405BP

PATIENT
  Age: 56 Year
  Sex: Female

DRUGS (13)
  1. SPIRIVA [Suspect]
     Indication: DYSPNOEA
     Dosage: 18MCG
     Route: 055
     Dates: start: 20090301
  2. XOPENEX [Concomitant]
     Route: 055
  3. LACTULOSE [Concomitant]
  4. SPIRONOLACTONE [Concomitant]
  5. RANITIDINE [Concomitant]
  6. LASIX [Concomitant]
  7. MUCINEX [Concomitant]
  8. THYROID MEDICATION [Concomitant]
  9. TESSALON [Concomitant]
  10. PROPRANOLOL HYDROCHLORIDE [Concomitant]
  11. PEXEVA [Concomitant]
  12. LORAZEPAM [Concomitant]
  13. POTASSIUM CHLORIDE [Concomitant]

REACTIONS (3)
  - COUGH [None]
  - DYSPNOEA [None]
  - WHEEZING [None]
